FAERS Safety Report 25496947 (Version 1)
Quarter: 2025Q3

REPORT INFORMATION
  Report Type: Spontaneous
  Country: US (occurrence: US)
  Receive Date: 20250701
  Receipt Date: 20250701
  Transmission Date: 20251020
  Serious: No
  Sender: SANOFI AVENTIS
  Company Number: US-SA-2025SA182161

PATIENT
  Sex: Female

DRUGS (23)
  1. DUPIXENT [Suspect]
     Active Substance: DUPILUMAB
     Indication: Steroid therapy
     Dosage: 300 MG, QOW
     Route: 058
  2. ALBUTEROL SULFATE\IPRATROPIUM BROMIDE [Concomitant]
     Active Substance: ALBUTEROL SULFATE\IPRATROPIUM BROMIDE
  3. Aspirin chemipharm [Concomitant]
  4. ATIVAN [Concomitant]
     Active Substance: LORAZEPAM
  5. ATORVASTATIN [Concomitant]
     Active Substance: ATORVASTATIN
  6. AZELASTINE [Concomitant]
     Active Substance: AZELASTINE
  7. BREZTRI [Concomitant]
     Active Substance: BUDESONIDE\FORMOTEROL\GLYCOPYRROLATE
  8. CLOPIDOGREL [Concomitant]
     Active Substance: CLOPIDOGREL BISULFATE
  9. ENTRESTO [Concomitant]
     Active Substance: SACUBITRIL\VALSARTAN
  10. ESCITALOPRAM [Concomitant]
     Active Substance: ESCITALOPRAM OXALATE
  11. FAMOTIDINE AKRI [Concomitant]
  12. FERROUS SULFATE [Concomitant]
     Active Substance: FERROUS SULFATE
  13. IPRATROPIUM [Concomitant]
     Active Substance: IPRATROPIUM
  14. Isosorbide Dinitraat Katwijk [Concomitant]
  15. LASIX [Concomitant]
     Active Substance: FUROSEMIDE
  16. METOPROLOL SUCCINATE [Concomitant]
     Active Substance: METOPROLOL SUCCINATE
  17. MONTELUKAST [Concomitant]
     Active Substance: MONTELUKAST
  18. MUCINEX [Concomitant]
     Active Substance: GUAIFENESIN
  19. Nitroglycerin Bioren [Concomitant]
  20. ONDANSETRON [Concomitant]
     Active Substance: ONDANSETRON
  21. ROPINIROLE [Concomitant]
     Active Substance: ROPINIROLE
  22. TYLENOL [Concomitant]
     Active Substance: ACETAMINOPHEN
  23. PROBIOTICS NOS [Concomitant]
     Active Substance: PROBIOTICS NOS

REACTIONS (3)
  - Depression [Unknown]
  - Incorrect dose administered [Unknown]
  - Product use in unapproved indication [Unknown]
